FAERS Safety Report 7090120-8 (Version None)
Quarter: 2010Q4

REPORT INFORMATION
  Report Type: 
  Country: None (occurrence: None)
  Receive Date: 20101105
  Receipt Date: 20101105
  Transmission Date: 20110411
  Serious: Yes (Other)
  Sender: FDA-Public Use
  Company Number: None

PATIENT

DRUGS (2)
  1. BUPIVACAINE HCL [Suspect]
     Indication: THERAPEUTIC PROCEDURE
     Dosage: 10MG ONCE INJECTION
     Dates: start: 20101027
  2. BUPIVACAINE HCL [Suspect]
     Indication: THERAPEUTIC PROCEDURE
     Dosage: 10MG ONCE INJECTION
     Dates: start: 20101027

REACTIONS (1)
  - DEVICE ISSUE [None]
